FAERS Safety Report 6689176-3 (Version None)
Quarter: 2010Q2

REPORT INFORMATION
  Report Type: 
  Country: None (occurrence: None)
  Receive Date: 20100420
  Receipt Date: 20100406
  Transmission Date: 20101027
  Serious: Yes (Hospitalization)
  Sender: FDA-Public Use
  Company Number: JP-B.I. PHARMACEUTICALS,INC./RIDGEFIELD-2010-BP-03886NB

PATIENT
  Age: 69 Year
  Sex: Male

DRUGS (4)
  1. BI-SIFROL TABLETS [Suspect]
     Indication: PARKINSON'S DISEASE
     Dosage: 0.1 MG
     Route: 048
  2. SYMMETREL [Suspect]
     Indication: PARKINSON'S DISEASE
     Dosage: 200 MG
     Route: 048
  3. NEODOPASOL [Suspect]
     Indication: PARKINSON'S DISEASE
     Dosage: 600 MG
     Route: 048
  4. DOPS [Suspect]
     Indication: PARKINSON'S DISEASE
     Dosage: 400 MG
     Route: 048

REACTIONS (1)
  - LIVER DISORDER [None]
